FAERS Safety Report 6914377-6 (Version None)
Quarter: 2010Q3

REPORT INFORMATION
  Report Type: 
  Country: None (occurrence: None)
  Receive Date: 20100803
  Receipt Date: 20100723
  Transmission Date: 20110219
  Serious: Yes (Other)
  Sender: FDA-Public Use
  Company Number: 2010US002928

PATIENT
  Age: 16 Year
  Sex: Female
  Weight: 44 kg

DRUGS (2)
  1. PROTOPIC [Suspect]
     Indication: VITILIGO
     Dosage: 0.1 %, TOPICAL
     Route: 061
     Dates: start: 20100319, end: 20100701
  2. EPISOL [Concomitant]

REACTIONS (4)
  - DEPRESSION [None]
  - ECONOMIC PROBLEM [None]
  - HYPERPHAGIA [None]
  - OFF LABEL USE [None]
